FAERS Safety Report 18216551 (Version 1)
Quarter: 2020Q3

REPORT INFORMATION
  Report Type: Spontaneous
  Country: MX (occurrence: MX)
  Receive Date: 20200829
  Receipt Date: 20200829
  Transmission Date: 20201103
  Serious: No
  Sender: FDA-Public Use
  Company Number: None

PATIENT
  Age: 60 Year
  Sex: Female
  Weight: 60 kg

DRUGS (5)
  1. HOMONS [Concomitant]
  2. MELOXICAM. [Suspect]
     Active Substance: MELOXICAM
     Indication: PULPITIS DENTAL
     Dosage: ?          QUANTITY:1 DF DOSAGE FORM;?
     Route: 048
     Dates: start: 20200825, end: 20200829
  3. METOCARBAMOL [Concomitant]
     Active Substance: METHOCARBAMOL
  4. MELOXICAM. [Suspect]
     Active Substance: MELOXICAM
     Indication: TOOTHACHE
     Dosage: ?          QUANTITY:1 DF DOSAGE FORM;?
     Route: 048
     Dates: start: 20200825, end: 20200829
  5. DOLO CALM PLUS [Concomitant]

REACTIONS (7)
  - Arthralgia [None]
  - Body temperature increased [None]
  - Headache [None]
  - Nasopharyngitis [None]
  - Chills [None]
  - Fatigue [None]
  - Asthenia [None]

NARRATIVE: CASE EVENT DATE: 20200828
